FAERS Safety Report 11636594 (Version 1)
Quarter: 2015Q4

REPORT INFORMATION
  Report Type: Spontaneous
  Country: US (occurrence: US)
  Receive Date: 20151016
  Receipt Date: 20151016
  Transmission Date: 20160304
  Serious: No
  Sender: FDA-Public Use
  Company Number: US-SHIRE-US201512770

PATIENT

DRUGS (1)
  1. VYVANSE [Suspect]
     Active Substance: LISDEXAMFETAMINE DIMESYLATE
     Indication: PRODUCT USED FOR UNKNOWN INDICATION
     Dosage: 70 MG, UNKNOWN
     Route: 048
     Dates: start: 2012

REACTIONS (5)
  - Erythema [Unknown]
  - Paraesthesia [Unknown]
  - Hypoaesthesia [Unknown]
  - Skin discolouration [Unknown]
  - Yellow skin [Unknown]

NARRATIVE: CASE EVENT DATE: 201507
